FAERS Safety Report 5082410-5 (Version None)
Quarter: 2006Q3

REPORT INFORMATION
  Report Type: 
  Country: None (occurrence: None)
  Receive Date: 20060817
  Receipt Date: 20060725
  Transmission Date: 20061208
  Serious: Yes (Life-Threatening)
  Sender: FDA-Public Use
  Company Number: FR-GLAXOSMITHKLINE-B0432250A

PATIENT
  Age: 49 Year
  Sex: Male
  Weight: 85 kg

DRUGS (8)
  1. ZELITREX [Suspect]
     Dosage: 500MG TWICE PER DAY
     Route: 048
     Dates: start: 20051015, end: 20060607
  2. HYDROCORTISONE TAB [Suspect]
     Dosage: 50MG PER DAY
     Route: 048
     Dates: start: 20050715
  3. TRIATEC [Suspect]
     Dosage: 2.5MG PER DAY
     Route: 048
     Dates: start: 20050715, end: 20060607
  4. AERIUS [Suspect]
     Dosage: 1UNIT PER DAY
     Route: 048
     Dates: start: 20060520, end: 20060607
  5. NEORECORMON [Suspect]
     Dosage: 30000UNIT SINGLE DOSE
     Route: 058
     Dates: start: 20051015
  6. FLUDARABINE [Concomitant]
     Dosage: 25MGM2 CYCLIC
     Dates: start: 20051012, end: 20060323
  7. ENDOXAN [Concomitant]
     Dosage: 250MGM2 CYCLIC
     Dates: start: 20051012, end: 20060323
  8. MABTHERA [Concomitant]
     Dates: start: 20051012, end: 20060323

REACTIONS (2)
  - ANAEMIA [None]
  - APLASIA PURE RED CELL [None]
